FAERS Safety Report 11448587 (Version 1)
Quarter: 2015Q3

REPORT INFORMATION
  Report Type: Report from Study
  Country: CL (occurrence: CL)
  Receive Date: 20150902
  Receipt Date: 20150902
  Transmission Date: 20151125
  Serious: Yes (Other)
  Sender: FDA-Public Use
  Company Number: CL-SA-2015SA130612

PATIENT

DRUGS (3)
  1. ADENOSINE. [Suspect]
     Active Substance: ADENOSINE
     Indication: ACUTE MYOCARDIAL INFARCTION
     Dosage: BOLUS
     Route: 022
  2. CLOPIDOGREL BISULFATE. [Suspect]
     Active Substance: CLOPIDOGREL BISULFATE
     Indication: ACUTE MYOCARDIAL INFARCTION
     Dosage: LOADNG DOSE
     Route: 065
  3. ADENOSINE. [Suspect]
     Active Substance: ADENOSINE
     Indication: ACUTE MYOCARDIAL INFARCTION
     Dosage: SYSTEMIC INFUSION IN 2-3 MINUTES
     Route: 022

REACTIONS (2)
  - Sinus bradycardia [Recovering/Resolving]
  - Atrioventricular block [Recovering/Resolving]
